FAERS Safety Report 5633640-2 (Version None)
Quarter: 2008Q1

REPORT INFORMATION
  Report Type: 
  Country: None (occurrence: None)
  Receive Date: 20080221
  Receipt Date: 20080213
  Transmission Date: 20080703
  Serious: Yes (Hospitalization)
  Sender: FDA-Public Use
  Company Number: US-PFIZER INC-2008014336

PATIENT
  Age: 97 Year
  Sex: Female
  Weight: 46 kg

DRUGS (11)
  1. XALATAN [Suspect]
     Indication: GLAUCOMA
  2. FOSAMAX [Concomitant]
  3. TYLENOL EXTRA-STRENGTH [Concomitant]
  4. NORVASC [Concomitant]
  5. AVAPRO [Concomitant]
  6. ASPIRIN [Concomitant]
  7. LUTEIN [Concomitant]
  8. ADVAIR DISKUS 100/50 [Concomitant]
  9. ARTIFICIAL TEARS [Concomitant]
  10. CALCIUM [Concomitant]
  11. VITAMIN CAP [Concomitant]

REACTIONS (3)
  - INFLUENZA [None]
  - MEDICATION ERROR [None]
  - PNEUMONIA [None]
